FAERS Safety Report 13795805 (Version 1)
Quarter: 2017Q3

REPORT INFORMATION
  Report Type: Report from Study
  Country: CO (occurrence: CO)
  Receive Date: 20170726
  Receipt Date: 20170726
  Transmission Date: 20171127
  Serious: Yes (Hospitalization)
  Sender: FDA-Public Use
  Company Number: CO-JNJFOC-20170719608

PATIENT
  Age: 20 Year
  Sex: Male
  Weight: 53 kg

DRUGS (1)
  1. REMICADE [Suspect]
     Active Substance: INFLIXIMAB
     Indication: CROHN^S DISEASE
     Route: 042
     Dates: start: 20151002, end: 20161201

REACTIONS (3)
  - Product use issue [Unknown]
  - Off label use [Unknown]
  - Varicella [Recovering/Resolving]

NARRATIVE: CASE EVENT DATE: 20151002
